FAERS Safety Report 17861177 (Version 3)
Quarter: 2020Q3

REPORT INFORMATION
  Report Type: Spontaneous
  Country: CH (occurrence: CH)
  Receive Date: 20200604
  Receipt Date: 20200706
  Transmission Date: 20201103
  Serious: Yes (Hospitalization, Other)
  Sender: FDA-Public Use
  Company Number: CH-PFIZER INC-2020215942

PATIENT
  Age: 38 Year
  Sex: Male

DRUGS (1)
  1. SILDENAFIL CITRATE. [Suspect]
     Active Substance: SILDENAFIL CITRATE
     Indication: ERECTILE DYSFUNCTION
     Dosage: 3 DF, DAILY
     Route: 048

REACTIONS (3)
  - Maculopathy [Recovered/Resolved]
  - Overdose [Unknown]
  - Retinal haemorrhage [Recovered/Resolved]
